FAERS Safety Report 13943530 (Version 2)
Quarter: 2017Q4

REPORT INFORMATION
  Report Type: Report from Study
  Country: US (occurrence: US)
  Receive Date: 20170907
  Receipt Date: 20171117
  Transmission Date: 20180320
  Serious: Yes (Death, Hospitalization, Other)
  Sender: FDA-Public Use
  Company Number: US-UCBSA-2017017685

PATIENT
  Sex: Male

DRUGS (1)
  1. LEVETIRACETAM. [Suspect]
     Active Substance: LEVETIRACETAM
     Indication: EPILEPSY
     Dosage: 100MG/ML ORAL SOLUTION
     Dates: end: 20170505

REACTIONS (10)
  - Electrocardiogram QT prolonged [Unknown]
  - Dyspnoea [Unknown]
  - Cardiac arrest [Fatal]
  - Cardiomyopathy [Unknown]
  - Neurodegenerative disorder [Unknown]
  - Seizure [Unknown]
  - Pneumonia aspiration [Unknown]
  - Acidosis [Unknown]
  - Muscle disorder [Unknown]
  - Developmental delay [Unknown]
